FAERS Safety Report 5284887-9 (Version None)
Quarter: 2007Q2

REPORT INFORMATION
  Report Type: 
  Country: None (occurrence: None)
  Receive Date: 20070403
  Receipt Date: 20070326
  Transmission Date: 20071010
  Serious: Yes (Hospitalization)
  Sender: FDA-Public Use
  Company Number: FR-ABBOTT-07P-056-0360266-00

PATIENT
  Age: 75 Year
  Sex: Male

DRUGS (16)
  1. ODRIK [Suspect]
     Indication: DRUG USE FOR UNKNOWN INDICATION
     Route: 048
     Dates: start: 20070105, end: 20070115
  2. ODRIK [Suspect]
     Route: 048
     Dates: end: 20070104
  3. FUROSEMIDE [Interacting]
     Indication: DRUG USE FOR UNKNOWN INDICATION
     Route: 048
     Dates: start: 20070105, end: 20070115
  4. FUROSEMIDE [Interacting]
     Route: 048
     Dates: end: 20070104
  5. ORUDIS [Suspect]
     Indication: PROSTATITIS
     Route: 048
     Dates: start: 20061221, end: 20070115
  6. METFORMIN HCL [Concomitant]
     Indication: DRUG USE FOR UNKNOWN INDICATION
  7. GLICLAZIDE [Concomitant]
     Indication: DRUG USE FOR UNKNOWN INDICATION
  8. CLOPIDOGREL [Concomitant]
     Indication: DRUG USE FOR UNKNOWN INDICATION
  9. RABEPRAZOLE SODIUM [Concomitant]
     Indication: DRUG USE FOR UNKNOWN INDICATION
  10. LEVOTHYROXINE SODIC [Concomitant]
     Indication: DRUG USE FOR UNKNOWN INDICATION
  11. AMIODARONE HCL [Concomitant]
     Indication: DRUG USE FOR UNKNOWN INDICATION
  12. ATORVASTATIN CALCIUM [Concomitant]
     Indication: DRUG USE FOR UNKNOWN INDICATION
  13. BISOPROLOL [Concomitant]
     Indication: DRUG USE FOR UNKNOWN INDICATION
     Dates: end: 20070115
  14. BISOPROLOL [Concomitant]
     Dates: start: 20070117
  15. CIPROFLOXACIN HCL [Concomitant]
     Indication: PROSTATITIS
     Dates: start: 20061221
  16. SULFAMETHOXAZOLE, TRIMERHOPRIME [Concomitant]
     Indication: DRUG USE FOR UNKNOWN INDICATION
     Dates: start: 20061221

REACTIONS (5)
  - ANURIA [None]
  - ASTHENIA [None]
  - DRUG INTERACTION [None]
  - HYPOTENSION [None]
  - RENAL FAILURE ACUTE [None]
